FAERS Safety Report 5826164-0 (Version None)
Quarter: 2008Q2

REPORT INFORMATION
  Report Type: 
  Country: None (occurrence: None)
  Receive Date: 20080601
  Receipt Date: 20080215
  Transmission Date: 20081010
  Serious: No
  Sender: FDA-Public Use
  Company Number: US200802003846

PATIENT
  Age: 56 Year
  Sex: Female
  Weight: 113.4 kg

DRUGS (5)
  1. BYETTA [Suspect]
     Indication: TYPE 2 DIABETES MELLITUS
     Dosage: 5 UG, 2/D, SUBCUTANEOUS ; 10 UG, 2/D, SUBCUTANEOUS
     Route: 058
     Dates: start: 20060401, end: 20060501
  2. BYETTA [Suspect]
     Indication: TYPE 2 DIABETES MELLITUS
     Dosage: 5 UG, 2/D, SUBCUTANEOUS ; 10 UG, 2/D, SUBCUTANEOUS
     Route: 058
     Dates: start: 20060501
  3. SULAR [Concomitant]
  4. AVALIDE [Concomitant]
  5. WELLBUTRIN [Concomitant]

REACTIONS (4)
  - BALANCE DISORDER [None]
  - FEELING COLD [None]
  - PRESYNCOPE [None]
  - WEIGHT DECREASED [None]
